FAERS Safety Report 18746442 (Version 1)
Quarter: 2021Q1

REPORT INFORMATION
  Report Type: Spontaneous
  Country: ES (occurrence: ES)
  Receive Date: 20210115
  Receipt Date: 20210115
  Transmission Date: 20210419
  Serious: Yes (Other)
  Sender: FDA-Public Use
  Company Number: ES-TEVA-2021-ES-1868438

PATIENT
  Age: 57 Year
  Sex: Male
  Weight: 105.7 kg

DRUGS (5)
  1. LOPINAVIR + RITONAVIR [Concomitant]
     Active Substance: LOPINAVIR\RITONAVIR
     Indication: COVID-19
     Dosage: 400MILLIGRAM
     Route: 048
     Dates: start: 20200313, end: 20200327
  2. TOCILIZUMAB. [Concomitant]
     Active Substance: TOCILIZUMAB
     Indication: COVID-19
     Dosage: 800MILLIGRAM
     Route: 042
     Dates: start: 20200314, end: 20200316
  3. LEVOFLOXACINO [Concomitant]
     Active Substance: LEVOFLOXACIN
     Indication: PNEUMONIA
     Dosage: 500MILLIGRAM
     Route: 042
     Dates: start: 20200314, end: 20200327
  4. HIDROXICLOROQUINA [Suspect]
     Active Substance: HYDROXYCHLOROQUINE
     Indication: COVID-19
     Dosage: 400 MG FIRST DAY, THEN 200 MG
     Route: 048
     Dates: start: 20200315, end: 20200327
  5. BETAFERON [Concomitant]
     Active Substance: INTERFERON BETA-1B
     Indication: COVID-19
     Dosage: 250UG/KG
     Route: 003
     Dates: start: 20200314, end: 20200326

REACTIONS (1)
  - Haemolytic anaemia [Recovered/Resolved]

NARRATIVE: CASE EVENT DATE: 20200324
